FAERS Safety Report 5504770-0 (Version None)
Quarter: 2007Q4

REPORT INFORMATION
  Report Type: 
  Country: None (occurrence: None)
  Receive Date: 20071031
  Receipt Date: 20071031
  Transmission Date: 20080405
  Serious: Yes (Hospitalization)
  Sender: FDA-Public Use
  Company Number: None

PATIENT
  Age: 29 Year
  Sex: Female

DRUGS (1)
  1. TRAMADOL HCL [Suspect]
     Dosage: ONE TIME QHS PRN ONE TIME QHS PO
     Route: 048
     Dates: start: 20071026, end: 20071028

REACTIONS (3)
  - ANXIETY [None]
  - DRUG PRESCRIBING ERROR [None]
  - TREMOR [None]
